FAERS Safety Report 9960446 (Version 1)
Quarter: 2014Q1

REPORT INFORMATION
  Report Type: Report from Study
  Country: US (occurrence: US)
  Receive Date: 20140305
  Receipt Date: 20140305
  Transmission Date: 20141002
  Serious: No
  Sender: FDA-Public Use
  Company Number: US-ABBVIE-13P-163-1110402-00

PATIENT
  Age: 58 Year
  Sex: Female

DRUGS (6)
  1. HUMIRA [Suspect]
     Indication: PSORIASIS
     Dosage: LOADING DOSE
     Dates: start: 20130603
  2. HUMIRA [Suspect]
     Dates: start: 20130610
  3. THYROID 75 [Concomitant]
     Indication: THYROID DISORDER
     Dosage: DAILY
  4. EXCEDRIN [Concomitant]
     Indication: HEADACHE
  5. DARVOCET [Concomitant]
     Indication: PRODUCT USED FOR UNKNOWN INDICATION
  6. CALFLEX [Concomitant]
     Indication: PRODUCT USED FOR UNKNOWN INDICATION

REACTIONS (1)
  - Throat irritation [Not Recovered/Not Resolved]
